FAERS Safety Report 14007114 (Version 1)
Quarter: 2017Q3

REPORT INFORMATION
  Report Type: Spontaneous
  Country: US (occurrence: US)
  Receive Date: 20170923
  Receipt Date: 20170923
  Transmission Date: 20171128
  Serious: Yes (Other)
  Sender: FDA-Public Use
  Company Number: None

PATIENT
  Age: 38 Year
  Sex: Female
  Weight: 123.3 kg

DRUGS (22)
  1. METFORMIN [Concomitant]
     Active Substance: METFORMIN HYDROCHLORIDE
  2. OMOPROZOLE [Concomitant]
  3. BENADRYL [Concomitant]
     Active Substance: DIPHENHYDRAMINE HYDROCHLORIDE
  4. VITAMIN C WITH ROSE HIPS [Concomitant]
  5. CELEXA [Concomitant]
     Active Substance: CITALOPRAM HYDROBROMIDE
  6. ROBAXIN [Suspect]
     Active Substance: METHOCARBAMOL
     Indication: MYALGIA
     Dosage: ?          QUANTITY:1 TABLET(S);?
     Route: 048
     Dates: start: 20170920, end: 20170923
  7. PERCOCET [Concomitant]
     Active Substance: ACETAMINOPHEN\OXYCODONE HYDROCHLORIDE
  8. COREG [Concomitant]
     Active Substance: CARVEDILOL
  9. XYZAL [Concomitant]
     Active Substance: LEVOCETIRIZINE DIHYDROCHLORIDE
  10. TYLENOL [Concomitant]
     Active Substance: ACETAMINOPHEN
  11. BENTYL [Concomitant]
     Active Substance: DICYCLOMINE HYDROCHLORIDE
  12. KLONOPIN [Concomitant]
     Active Substance: CLONAZEPAM
  13. REMERON [Concomitant]
     Active Substance: MIRTAZAPINE
  14. JANUVIA [Concomitant]
     Active Substance: SITAGLIPTIN PHOSPHATE
  15. CYMBALTA [Concomitant]
     Active Substance: DULOXETINE HYDROCHLORIDE
  16. ZETIA [Concomitant]
     Active Substance: EZETIMIBE
  17. TYLENOL PM [Concomitant]
     Active Substance: ACETAMINOPHEN\DIPHENHYDRAMINE
  18. FENOFIBRATE. [Concomitant]
     Active Substance: FENOFIBRATE
  19. CLONIDINE. [Concomitant]
     Active Substance: CLONIDINE
  20. LOSARTAN/HCTZ [Concomitant]
     Active Substance: HYDROCHLOROTHIAZIDE\LOSARTAN
  21. FLONASE [Concomitant]
     Active Substance: FLUTICASONE PROPIONATE
  22. ZOFRAN [Concomitant]
     Active Substance: ONDANSETRON HYDROCHLORIDE

REACTIONS (4)
  - Pruritus [None]
  - Diarrhoea [None]
  - Nausea [None]
  - Hyperhidrosis [None]

NARRATIVE: CASE EVENT DATE: 20170920
